FAERS Safety Report 9664191 (Version 2)
Quarter: 2013Q4

REPORT INFORMATION
  Report Type: Spontaneous
  Country: SE (occurrence: SE)
  Receive Date: 20131101
  Receipt Date: 20131101
  Transmission Date: 20140711
  Serious: Yes (Other)
  Sender: FDA-Public Use
  Company Number: SE-BAYER-2013-029109

PATIENT
  Age: 22 Year
  Sex: Female
  Weight: 63 kg

DRUGS (1)
  1. MIRENA [Suspect]
     Dosage: 20 MCG/24HR, CONT
     Route: 015
     Dates: start: 20130109

REACTIONS (11)
  - Pregnancy with contraceptive device [None]
  - Device difficult to use [None]
  - Drug ineffective [None]
  - Device dislocation [None]
  - Premature labour [None]
  - Premature rupture of membranes [None]
  - Beta haemolytic streptococcal infection [None]
  - Breech delivery [None]
  - Umbilical cord prolapse [None]
  - Abnormal labour affecting foetus [None]
  - Stillbirth [None]
